FAERS Safety Report 9322060 (Version 1)
Quarter: 2013Q2

REPORT INFORMATION
  Report Type: Report from Study
  Country: CA (occurrence: CA)
  Receive Date: 20130531
  Receipt Date: 20130531
  Transmission Date: 20140414
  Serious: Yes (Other)
  Sender: FDA-Public Use
  Company Number: CA-ABBOTT-13P-028-1095992-00

PATIENT
  Age: 64 Year
  Sex: Male

DRUGS (2)
  1. HUMIRA [Suspect]
     Indication: PSORIATIC ARTHROPATHY
     Route: 058
     Dates: start: 20130424
  2. DILANTIN [Concomitant]
     Indication: EPILEPSY
     Dates: end: 20130505

REACTIONS (2)
  - Petit mal epilepsy [Recovered/Resolved]
  - Physiotherapy [Unknown]
